FAERS Safety Report 7529579-8 (Version None)
Quarter: 2011Q2

REPORT INFORMATION
  Report Type: 
  Country: None (occurrence: None)
  Receive Date: 20110607
  Receipt Date: 20050726
  Transmission Date: 20111010
  Serious: Yes (Other)
  Sender: FDA-Public Use
  Company Number: PHFR2005GB02636

PATIENT
  Sex: Male

DRUGS (4)
  1. METFORMIN HCL [Concomitant]
  2. CLOZAPINE [Suspect]
     Indication: SCHIZOPHRENIA
     Dates: start: 19970911
  3. VENLAFAXINE [Concomitant]
  4. PROTON PUMP INHIBITORS [Concomitant]

REACTIONS (3)
  - OESOPHAGEAL VARICES HAEMORRHAGE [None]
  - VARICES OESOPHAGEAL [None]
  - HAEMORRHAGE [None]
